FAERS Safety Report 9000268 (Version 1)
Quarter: 2013Q1

REPORT INFORMATION
  Report Type: Spontaneous
  Country: US (occurrence: US)
  Receive Date: 20130105
  Receipt Date: 20130105
  Transmission Date: 20140127
  Serious: No
  Sender: FDA-Public Use
  Company Number: US-ASTRAZENECA-2012SE94326

PATIENT
  Age: 10 Year
  Sex: Male

DRUGS (1)
  1. SEROQUEL [Suspect]
     Route: 048

REACTIONS (2)
  - Hyperaemia [Unknown]
  - Peripheral coldness [Unknown]
